FAERS Safety Report 4984658-4 (Version None)
Quarter: 2006Q2

REPORT INFORMATION
  Report Type: 
  Country: None (occurrence: None)
  Receive Date: 20060427
  Receipt Date: 20051206
  Transmission Date: 20061013
  Serious: Yes (Hospitalization)
  Sender: FDA-Public Use
  Company Number: US-MERCK-0512USA01061

PATIENT
  Age: 82 Year
  Sex: Male
  Weight: 81 kg

DRUGS (23)
  1. VIOXX [Suspect]
     Indication: OSTEOARTHRITIS
     Route: 048
     Dates: start: 19990101, end: 20030101
  2. VIOXX [Suspect]
     Route: 048
     Dates: start: 19990101, end: 20030101
  3. GLUCOTROL XL [Concomitant]
     Indication: DIABETES MELLITUS
     Route: 048
  4. NORVASC [Concomitant]
     Indication: HYPERTENSION
     Route: 048
     Dates: start: 19980101
  5. NORVASC [Concomitant]
     Indication: ARTERIOSCLEROSIS
     Route: 048
     Dates: start: 19980101
  6. COZAAR [Concomitant]
     Indication: HYPERTENSION
     Route: 048
     Dates: start: 20021001, end: 20030901
  7. COZAAR [Concomitant]
     Indication: CARDIAC DISORDER
     Route: 048
     Dates: start: 20021001, end: 20030901
  8. ZANTAC [Concomitant]
     Indication: GASTROOESOPHAGEAL REFLUX DISEASE
     Route: 048
  9. LASIX [Concomitant]
     Indication: OEDEMA PERIPHERAL
     Route: 048
     Dates: start: 19950101, end: 20050101
  10. POTASSIUM CHLORIDE [Concomitant]
     Indication: BLOOD POTASSIUM DECREASED
     Route: 048
  11. PREVACID [Concomitant]
     Indication: GASTROOESOPHAGEAL REFLUX DISEASE
     Route: 048
  12. SYNTHROID [Concomitant]
     Indication: HYPOTHYROIDISM
     Route: 048
  13. TYLENOL (CAPLET) [Concomitant]
     Indication: ARTHRALGIA
     Route: 048
  14. HYTRIN [Concomitant]
     Indication: BENIGN PROSTATIC HYPERPLASIA
     Route: 048
     Dates: start: 20000101
  15. ASPIRIN [Concomitant]
     Route: 048
     Dates: start: 19980101, end: 20030101
  16. CALCIUM (UNSPECIFIED) [Concomitant]
     Route: 048
     Dates: start: 19980101
  17. ZINC (UNSPECIFIED) [Concomitant]
     Route: 048
     Dates: start: 19980101
  18. VITAMIN E [Concomitant]
     Route: 048
     Dates: start: 19980101, end: 20030101
  19. SAW PALMETTO [Concomitant]
     Indication: PROSTATISM
     Route: 048
     Dates: start: 19980101, end: 19990101
  20. FOLIC ACID [Concomitant]
     Route: 048
     Dates: start: 19980101
  21. ASCORBIC ACID [Concomitant]
     Route: 048
     Dates: start: 19980101
  22. SELENIUM (UNSPECIFIED) [Concomitant]
     Route: 065
  23. PLAVIX [Concomitant]
     Route: 065

REACTIONS (22)
  - AORTIC STENOSIS [None]
  - AORTIC VALVE INCOMPETENCE [None]
  - ARTERIOSCLEROSIS [None]
  - ATRIAL FIBRILLATION [None]
  - CARDIAC FAILURE CONGESTIVE [None]
  - CARDIAC VALVE DISEASE [None]
  - CARDIOGENIC SHOCK [None]
  - CEREBROVASCULAR ACCIDENT [None]
  - CONDITION AGGRAVATED [None]
  - CORONARY ARTERY DISEASE [None]
  - HYPERTENSION [None]
  - MACULAR OEDEMA [None]
  - MITRAL VALVE CALCIFICATION [None]
  - MITRAL VALVE INCOMPETENCE [None]
  - POST PROCEDURAL COMPLICATION [None]
  - POST PROCEDURAL HAEMORRHAGE [None]
  - PROCEDURAL HYPOTENSION [None]
  - PSEUDOPHAKIA [None]
  - RETINAL VEIN OCCLUSION [None]
  - RETINOPATHY HYPERTENSIVE [None]
  - VENTRICULAR HYPERTROPHY [None]
  - VITREOUS DETACHMENT [None]
